FAERS Safety Report 6041802-8 (Version None)
Quarter: 2009Q1

REPORT INFORMATION
  Report Type: 
  Country: None (occurrence: None)
  Receive Date: 20090116
  Receipt Date: 20090115
  Transmission Date: 20090719
  Serious: Yes (Life-Threatening)
  Sender: FDA-Public Use
  Company Number: CA-ASTRAZENECA-2009UW01250

PATIENT
  Age: 44 Year
  Sex: Female
  Weight: 56.7 kg

DRUGS (4)
  1. ATACAND HCT [Suspect]
     Dosage: 1 DOSAGE FORM
     Route: 065
  2. ATACAND HCT [Suspect]
     Dosage: 2 DOSAGE FORMS ONCE
     Route: 065
  3. INSULIN NPH [Concomitant]
  4. INSULIN TORONTO [Concomitant]

REACTIONS (11)
  - CONFUSIONAL STATE [None]
  - DIZZINESS [None]
  - FATIGUE [None]
  - GOUT [None]
  - HYPOKINESIA [None]
  - LOSS OF CONSCIOUSNESS [None]
  - MENTAL IMPAIRMENT [None]
  - PALPITATIONS [None]
  - SOMNOLENCE [None]
  - SYNCOPE [None]
  - TREMOR [None]
